FAERS Safety Report 25063694 (Version 1)
Quarter: 2025Q1

REPORT INFORMATION
  Report Type: Spontaneous
  Country: US (occurrence: None)
  Receive Date: 20250310
  Receipt Date: 20250310
  Transmission Date: 20250408
  Serious: Yes (Life-Threatening, Hospitalization)
  Sender: FDA-CTU
  Company Number: None

PATIENT
  Age: 64 Year
  Sex: Male
  Weight: 76 kg

DRUGS (1)
  1. GLIPIZIDE [Suspect]
     Active Substance: GLIPIZIDE
     Indication: Diabetes mellitus
     Dosage: FREQUENCY : TWICE A DAY;?
     Route: 048

REACTIONS (6)
  - Anaemia [None]
  - Haemorrhage [None]
  - Haematuria [None]
  - Asthenia [None]
  - Blood lactate dehydrogenase increased [None]
  - Therapy cessation [None]

NARRATIVE: CASE EVENT DATE: 20240818
